FAERS Safety Report 9957534 (Version 1)
Quarter: 2014Q1

REPORT INFORMATION
  Report Type: Report from Study
  Country: US (occurrence: US)
  Receive Date: 20140304
  Receipt Date: 20140304
  Transmission Date: 20141002
  Serious: No
  Sender: FDA-Public Use
  Company Number: US-ABBVIE-13P-163-1092285-00

PATIENT
  Age: 91 Year
  Sex: Female

DRUGS (5)
  1. HUMIRA [Suspect]
     Indication: RHEUMATOID ARTHRITIS
     Route: 058
  2. METHOTREXATE [Concomitant]
     Indication: PRODUCT USED FOR UNKNOWN INDICATION
     Dosage: 5 MG ONE WEEK 7.5 THE NEXT WEEK ALTERNATING EVERY OTHER WEEK
  3. METHOTREXATE [Concomitant]
     Dosage: 5 MG ONE WEEK 7.5 THE NEXT WEEK ALTERNATING EVERY OTHER WEEK
  4. FOLIC ACID [Concomitant]
     Indication: PRODUCT USED FOR UNKNOWN INDICATION
     Dosage: IN CONJUNCTION WITH METHOTREXATE
  5. ATENOLOL [Concomitant]
     Indication: PRODUCT USED FOR UNKNOWN INDICATION

REACTIONS (3)
  - Device malfunction [Recovering/Resolving]
  - Incorrect dose administered [Recovering/Resolving]
  - Injection site reaction [Recovering/Resolving]
